FAERS Safety Report 23387829 (Version 1)
Quarter: 2024Q1

REPORT INFORMATION
  Report Type: Spontaneous
  Country: US (occurrence: None)
  Receive Date: 20240109
  Receipt Date: 20240109
  Transmission Date: 20240410
  Serious: No
  Sender: FDA-Public Use
  Company Number: None

PATIENT
  Age: 40 Year
  Sex: Female

DRUGS (13)
  1. METHOTREXATE [Suspect]
     Active Substance: METHOTREXATE
     Indication: Hypothyroidism
     Dosage: OTHER QUANTITY : 100 TABLET(S);?
     Route: 048
  2. LEVOTHYROXINE [Suspect]
     Active Substance: LEVOTHYROXINE
  3. LAMOTRIGINE [Concomitant]
     Active Substance: LAMOTRIGINE
  4. OMEPRAZOLE [Concomitant]
  5. WEGOVY [Concomitant]
     Active Substance: SEMAGLUTIDE
  6. buproprion [Concomitant]
  7. SINGULAIR [Concomitant]
     Active Substance: MONTELUKAST SODIUM
  8. METOPROLOL [Concomitant]
  9. ATIVAN [Concomitant]
  10. VYVANSE [Concomitant]
     Active Substance: LISDEXAMFETAMINE DIMESYLATE
  11. VITAMIN D [Concomitant]
     Active Substance: VITAMIN D NOS
  12. VITAMIN B COMPLEX [Concomitant]
     Active Substance: CYANOCOBALAMIN\DEXPANTHENOL\NIACINAMIDE\PYRIDOXINE HYDROCHLORIDE\RIBOFLAVIN 5^-PHOSPHATE SODIUM\THIA
  13. MELATONIN [Concomitant]
     Active Substance: MELATONIN

REACTIONS (5)
  - Feeling abnormal [None]
  - Quality of life decreased [None]
  - Blood thyroid stimulating hormone increased [None]
  - Wrong product administered [None]
  - Product dispensing error [None]
